FAERS Safety Report 4364609-6 (Version None)
Quarter: 2004Q2

REPORT INFORMATION
  Report Type: 
  Country: None (occurrence: None)
  Receive Date: 20040521
  Receipt Date: 20040510
  Transmission Date: 20050107
  Serious: Yes (Other)
  Sender: FDA-Public Use
  Company Number: 2004031490

PATIENT

DRUGS (1)
  1. SUDAFED 12 HOUR [Suspect]
     Indication: DRUG ABUSER
     Dosage: 90-100 TABLETS DAILY, ORAL
     Route: 048

REACTIONS (1)
  - UNEVALUABLE EVENT [None]
